FAERS Safety Report 7306205-4 (Version None)
Quarter: 2011Q1

REPORT INFORMATION
  Report Type: 
  Country: None (occurrence: None)
  Receive Date: 20110222
  Receipt Date: 20110209
  Transmission Date: 20110831
  Serious: Yes (Other)
  Sender: FDA-Public Use
  Company Number: PHHY2011GB10377

PATIENT
  Age: 91 Year
  Sex: Female
  Weight: 70 kg

DRUGS (8)
  1. BUDESONIDE [Concomitant]
  2. TRAMADOL HCL [Suspect]
     Indication: BACK PAIN
     Dosage: 100 MG, Q6H
     Route: 048
  3. LEVOTHYROXINE [Concomitant]
  4. ALBUTEROL [Concomitant]
  5. PARACETAMOL [Suspect]
     Dosage: 500 MG, Q6H
  6. ADCAL [Concomitant]
  7. SENNA [Concomitant]
  8. TIOTROPIUM BROMIDE [Concomitant]

REACTIONS (3)
  - SPINAL FRACTURE [None]
  - LIVER FUNCTION TEST ABNORMAL [None]
  - HEPATITIS [None]
